FAERS Safety Report 7469987-7 (Version None)
Quarter: 2011Q2

REPORT INFORMATION
  Report Type: 
  Country: None (occurrence: None)
  Receive Date: 20110510
  Receipt Date: 20110428
  Transmission Date: 20111010
  Serious: Yes (Hospitalization, Other)
  Sender: FDA-Public Use
  Company Number: US-AMGEN-USASP2011022521

PATIENT
  Age: 33 Year
  Sex: Female
  Weight: 71.202 kg

DRUGS (11)
  1. CELLCEPT                           /01275102/ [Concomitant]
  2. ENBREL [Suspect]
     Indication: JUVENILE ARTHRITIS
     Dates: start: 20100101, end: 20110207
  3. MULTI-VITAMINS [Concomitant]
     Dosage: UNK UNK, QD
  4. REMICADE [Concomitant]
  5. METHOTREXATE [Concomitant]
  6. HUMIRA [Concomitant]
  7. CALCIUM + VITAMIN D                /01483701/ [Concomitant]
     Dosage: UNK UNK, QD
  8. PREDNISONE [Concomitant]
     Dosage: 10 MG, QD
  9. FISH OIL [Concomitant]
     Dosage: UNK UNK, QD
  10. APAP TAB [Concomitant]
     Dosage: UNK UNK, PRN
  11. CELEXA [Concomitant]
     Dosage: 20 MG, QD

REACTIONS (18)
  - LYMPHADENOPATHY [None]
  - PARAESTHESIA [None]
  - CONFUSIONAL STATE [None]
  - BIOPSY LYMPH GLAND ABNORMAL [None]
  - CENTRAL NERVOUS SYSTEM LESION [None]
  - RENAL MASS [None]
  - HYPOAESTHESIA [None]
  - PLEOCYTOSIS [None]
  - PYREXIA [None]
  - HEADACHE [None]
  - MENTAL STATUS CHANGES [None]
  - APRAXIA [None]
  - MUSCULAR WEAKNESS [None]
  - HEPATOSPLENOMEGALY [None]
  - PERONEAL NERVE PALSY [None]
  - ENCEPHALITIS [None]
  - MENINGITIS ASEPTIC [None]
  - DIZZINESS [None]
